FAERS Safety Report 21205315 (Version 1)
Quarter: 2022Q3

REPORT INFORMATION
  Report Type: Spontaneous
  Country: IN (occurrence: IN)
  Receive Date: 20220812
  Receipt Date: 20220812
  Transmission Date: 20221027
  Serious: Yes (Hospitalization, Other)
  Sender: FDA-Public Use
  Company Number: IN-MACLEODS PHARMACEUTICALS US LTD-MAC2022036762

PATIENT

DRUGS (1)
  1. TRIAMCINOLONE ACETONIDE [Suspect]
     Active Substance: TRIAMCINOLONE ACETONIDE
     Indication: Product used for unknown indication
     Dosage: UNK,POSTERIOR SUB-TENON (PST)

REACTIONS (5)
  - Open globe injury [Unknown]
  - Vitreous floaters [Unknown]
  - Deposit eye [Unknown]
  - Blindness [Unknown]
  - Wrong technique in product usage process [Unknown]
